FAERS Safety Report 18058883 (Version 3)
Quarter: 2020Q4

REPORT INFORMATION
  Report Type: Spontaneous
  Country: US (occurrence: US)
  Receive Date: 20200723
  Receipt Date: 20201102
  Transmission Date: 20210113
  Serious: Yes (Disabling, Other)
  Sender: FDA-Public Use
  Company Number: US-009507513-2007USA008302

PATIENT
  Sex: Male

DRUGS (7)
  1. PARNATE [Concomitant]
     Active Substance: TRANYLCYPROMINE SULFATE
  2. BENADRYL [Concomitant]
     Active Substance: DIPHENHYDRAMINE HYDROCHLORIDE
     Dosage: 300 MILLIGRAM, QD
  3. DOXYLAMINE SUCCINATE. [Concomitant]
     Active Substance: DOXYLAMINE SUCCINATE
  4. ARTANE [Concomitant]
     Active Substance: TRIHEXYPHENIDYL HYDROCHLORIDE
  5. BELSOMRA [Suspect]
     Active Substance: SUVOREXANT
     Indication: INSOMNIA
     Dosage: 20 MILLIGRAM, 2 TIMES PER DAY
     Route: 048
     Dates: start: 201904, end: 202003
  6. BELSOMRA [Suspect]
     Active Substance: SUVOREXANT
     Dosage: 20 MILLIGRAM, PRN, AT NIGHT
     Route: 048
  7. NALTREXONE [Concomitant]
     Active Substance: NALTREXONE

REACTIONS (16)
  - Ill-defined disorder [Unknown]
  - Feeling abnormal [Unknown]
  - Dizziness [Recovering/Resolving]
  - Muscular weakness [Recovering/Resolving]
  - Abnormal behaviour [Unknown]
  - Therapeutic response unexpected [Unknown]
  - Facial bones fracture [Unknown]
  - Suicidal ideation [Recovered/Resolved]
  - Impaired work ability [Recovering/Resolving]
  - Disturbance in attention [Recovering/Resolving]
  - Syncope [Recovering/Resolving]
  - Memory impairment [Unknown]
  - Depression [Recovering/Resolving]
  - Fine motor skill dysfunction [Recovering/Resolving]
  - Product prescribing issue [Unknown]
  - Prescribed overdose [Unknown]

NARRATIVE: CASE EVENT DATE: 2019
